FAERS Safety Report 13839473 (Version 1)
Quarter: 2017Q3

REPORT INFORMATION
  Report Type: Spontaneous
  Country: JP (occurrence: JP)
  Receive Date: 20170807
  Receipt Date: 20170807
  Transmission Date: 20171127
  Serious: Yes (Other)
  Sender: FDA-Public Use
  Company Number: JP-JNJFOC-20170725808

PATIENT

DRUGS (2)
  1. ACETAMINOPHEN. [Suspect]
     Active Substance: ACETAMINOPHEN
     Route: 065
  2. ACETAMINOPHEN. [Suspect]
     Active Substance: ACETAMINOPHEN
     Indication: PRODUCT USED FOR UNKNOWN INDICATION
     Route: 065

REACTIONS (16)
  - Tubulointerstitial nephritis [Unknown]
  - Stevens-Johnson syndrome [Unknown]
  - Drug eruption [Unknown]
  - Oculomucocutaneous syndrome [Unknown]
  - Drug reaction with eosinophilia and systemic symptoms [Unknown]
  - Acute kidney injury [Unknown]
  - Hepatic function abnormal [Unknown]
  - Pyrexia [Unknown]
  - Erythema multiforme [Unknown]
  - Anaphylactic shock [Unknown]
  - Drug-induced liver injury [Unknown]
  - Toxic epidermal necrolysis [Unknown]
  - Abnormal behaviour [Unknown]
  - Rash [Unknown]
  - Gastric ulcer haemorrhage [Unknown]
  - Liver disorder [Unknown]
